FAERS Safety Report 4783545-4 (Version None)
Quarter: 2005Q3

REPORT INFORMATION
  Report Type: 
  Country: None (occurrence: None)
  Receive Date: 20050914
  Receipt Date: 20050125
  Transmission Date: 20060218
  Serious: Yes (Death, Hospitalization, Other)
  Sender: FDA-Public Use
  Company Number: 163-20785-04070641

PATIENT
  Age: 52 Year
  Sex: Female
  Weight: 45 kg

DRUGS (22)
  1. THALOMID [Suspect]
     Indication: MULTIPLE MYELOMA
     Dosage: 200 MG, DAILY, ORAL; 50 MG, ONE DAY, ORAL; 50 MG, DAILY, ORAL
     Route: 048
     Dates: start: 20040501, end: 20040504
  2. THALOMID [Suspect]
     Indication: MULTIPLE MYELOMA
     Dosage: 200 MG, DAILY, ORAL; 50 MG, ONE DAY, ORAL; 50 MG, DAILY, ORAL
     Route: 048
     Dates: start: 20040526, end: 20040526
  3. THALOMID [Suspect]
     Indication: MULTIPLE MYELOMA
     Dosage: 200 MG, DAILY, ORAL; 50 MG, ONE DAY, ORAL; 50 MG, DAILY, ORAL
     Route: 048
     Dates: start: 20040531, end: 20040603
  4. THALOMID [Suspect]
     Indication: MULTIPLE MYELOMA
     Dosage: 200 MG, DAILY, ORAL; 50 MG, ONE DAY, ORAL; 50 MG, DAILY, ORAL
     Route: 048
     Dates: start: 20041116, end: 20041201
  5. MELPHALAN (MELPHALAN) (UNKNOWN) [Suspect]
     Indication: MULTIPLE MYELOMA
     Dosage: 312 MG, 1 DAY, INTRAVENOUS; 300 MG, 1 DAY, INTRAVENOUS
     Route: 042
     Dates: start: 20040708, end: 20040708
  6. MELPHALAN (MELPHALAN) (UNKNOWN) [Suspect]
     Indication: MULTIPLE MYELOMA
     Dosage: 312 MG, 1 DAY, INTRAVENOUS; 300 MG, 1 DAY, INTRAVENOUS
     Route: 042
     Dates: start: 20041013, end: 20041013
  7. DEXAMETHASONE [Suspect]
     Indication: MULTIPLE MYELOMA
     Dosage: SEE IMAGE
     Dates: start: 20040501, end: 20040504
  8. DEXAMETHASONE [Suspect]
     Indication: MULTIPLE MYELOMA
     Dosage: SEE IMAGE
     Dates: start: 20040531, end: 20040603
  9. DEXAMETHASONE [Suspect]
     Indication: MULTIPLE MYELOMA
     Dosage: SEE IMAGE
     Dates: start: 20041116, end: 20041119
  10. DEXAMETHASONE [Suspect]
     Indication: MULTIPLE MYELOMA
     Dosage: SEE IMAGE
     Dates: start: 20041201, end: 20041201
  11. ARA (CYTARABINE) (UNKNOWN) [Suspect]
     Indication: CENTRAL NERVOUS SYSTEM NEOPLASM
     Dosage: 100 MG, DAILY, INTRATHECAL
     Route: 037
     Dates: start: 20041229, end: 20041229
  12. HYDROCORTISONE [Suspect]
     Indication: CENTRAL NERVOUS SYSTEM NEOPLASM
     Dosage: 100 MG, DAILY, INTRATHECAL
     Route: 037
     Dates: start: 20041229, end: 20041229
  13. VELCADE [Suspect]
     Indication: MULTIPLE MYELOMA
     Dates: start: 20040501, end: 20040504
  14. VELCADE [Suspect]
     Indication: MULTIPLE MYELOMA
     Dates: start: 20040531, end: 20040603
  15. CISPLATIN [Suspect]
     Indication: MULTIPLE MYELOMA
     Dates: start: 20040501, end: 20040504
  16. CISPLATIN [Suspect]
     Indication: MULTIPLE MYELOMA
     Dates: start: 20040531, end: 20040603
  17. ADRIAMYCIN PFS [Suspect]
     Indication: MULTIPLE MYELOMA
     Dates: start: 20040501, end: 20040504
  18. ADRIAMYCIN PFS [Suspect]
     Indication: MULTIPLE MYELOMA
     Dates: start: 20040531, end: 20040603
  19. CYCLOPHOSPHAMIDE [Suspect]
     Indication: MULTIPLE MYELOMA
     Dates: start: 20040501, end: 20040504
  20. CYCLOPHOSPHAMIDE [Suspect]
     Indication: MULTIPLE MYELOMA
     Dates: start: 20040531, end: 20040603
  21. ETOPOSIDE [Suspect]
     Indication: MULTIPLE MYELOMA
     Dates: start: 20040501, end: 20040504
  22. ETOPOSIDE [Suspect]
     Indication: MULTIPLE MYELOMA
     Dates: start: 20040531, end: 20040603

REACTIONS (20)
  - ASTHENIA [None]
  - CENTRAL NERVOUS SYSTEM NEOPLASM [None]
  - COLITIS [None]
  - CONVULSION [None]
  - DEATH [None]
  - DEPRESSION [None]
  - DISEASE PROGRESSION [None]
  - DIZZINESS [None]
  - DYSARTHRIA [None]
  - FALL [None]
  - FEBRILE NEUTROPENIA [None]
  - HEADACHE [None]
  - LOSS OF CONSCIOUSNESS [None]
  - MUCOSAL INFLAMMATION [None]
  - NAUSEA [None]
  - ORTHOSTATIC HYPOTENSION [None]
  - PNEUMONIA [None]
  - STAPHYLOCOCCAL BACTERAEMIA [None]
  - SYNCOPE [None]
  - VOMITING [None]
